FAERS Safety Report 4819630-8 (Version None)
Quarter: 2005Q4

REPORT INFORMATION
  Report Type: 
  Country: None (occurrence: None)
  Receive Date: 20051102
  Receipt Date: 20051026
  Transmission Date: 20060501
  Serious: Yes (Hospitalization, Other)
  Sender: FDA-Public Use
  Company Number: 012009

PATIENT
  Age: 53 Year
  Sex: Male

DRUGS (13)
  1. PRIALT [Suspect]
     Indication: PAIN
     Dosage: SEE IAMGE
     Route: 037
     Dates: start: 20050701, end: 20051004
  2. PRIALT [Suspect]
     Indication: PAIN
     Dosage: SEE IAMGE
     Route: 037
     Dates: start: 20051004, end: 20051014
  3. PRIALT [Suspect]
     Indication: PAIN
     Dosage: SEE IAMGE
     Route: 037
     Dates: start: 20051014, end: 20051025
  4. PRIALT [Suspect]
     Indication: PAIN
     Dosage: SEE IAMGE
     Route: 037
     Dates: start: 20051025
  5. LORAZEPAM [Suspect]
     Indication: PAIN
     Dosage: ORAL
     Route: 048
  6. DILAUDID [Concomitant]
  7. CLONIDINE [Concomitant]
  8. NEURONTIN [Concomitant]
  9. CELEBREX [Concomitant]
  10. TRAZODONE HCL [Concomitant]
  11. CELEXA [Concomitant]
  12. ZYRTEC/00884302/ (CETIRIZINE HYDROCHLORIDE) [Concomitant]
  13. LEVAQUIN [Concomitant]

REACTIONS (11)
  - APHASIA [None]
  - ARTHRITIS BACTERIAL [None]
  - CONFUSIONAL STATE [None]
  - DIFFICULTY IN WALKING [None]
  - DISORIENTATION [None]
  - FALL [None]
  - JOINT INJURY [None]
  - LOSS OF CONSCIOUSNESS [None]
  - MENTAL IMPAIRMENT [None]
  - ORAL INTAKE REDUCED [None]
  - URINARY TRACT INFECTION [None]
